FAERS Safety Report 8276303-X (Version None)
Quarter: 2012Q2

REPORT INFORMATION
  Report Type: 
  Country: None (occurrence: None)
  Receive Date: 20120412
  Receipt Date: 20120410
  Transmission Date: 20120825
  Serious: Yes (Death, Hospitalization, Congenital Anomaly)
  Sender: FDA-Public Use
  Company Number: PHHY2012DK002222

PATIENT
  Sex: Female
  Weight: 2.3 kg

DRUGS (3)
  1. FOLIC ACID [Concomitant]
     Dosage: TWO TABLETS DAILY
     Route: 064
  2. VITAMINS NOS [Concomitant]
  3. TEGRETOL [Suspect]
     Indication: EPILEPSY
     Dosage: 200 MG, WEEKLY
     Route: 064

REACTIONS (27)
  - CONGENITAL GENITAL MALFORMATION [None]
  - CONGENITAL HYDRONEPHROSIS [None]
  - DECREASED APPETITE [None]
  - FOETAL EXPOSURE DURING PREGNANCY [None]
  - RENAL APLASIA [None]
  - UROGENITAL FISTULA [None]
  - EXOMPHALOS [None]
  - ILEUS [None]
  - GASTROINTESTINAL NECROSIS [None]
  - LOW BIRTH WEIGHT BABY [None]
  - SEPSIS [None]
  - SEPTIC SHOCK [None]
  - GASTROINTESTINAL STOMA COMPLICATION [None]
  - ABDOMINAL DISCOMFORT [None]
  - MULTIPLE CONGENITAL ABNORMALITIES [None]
  - URETHRAL OBSTRUCTION [None]
  - PYURIA [None]
  - CONGENITAL FOOT MALFORMATION [None]
  - CONGENITAL MEGAURETER [None]
  - PORTAL VENOUS GAS [None]
  - BLADDER DILATATION [None]
  - ANURIA [None]
  - HIP DYSPLASIA [None]
  - INTESTINAL GANGRENE [None]
  - URINARY TRACT INFECTION [None]
  - ANAL ATRESIA [None]
  - VOMITING [None]
